FAERS Safety Report 13344067 (Version 2)
Quarter: 2018Q1

REPORT INFORMATION
  Report Type: Report from Study
  Country: US (occurrence: US)
  Receive Date: 20170316
  Receipt Date: 20180131
  Transmission Date: 20180508
  Serious: No
  Sender: FDA-Public Use
  Company Number: US-009507513-1703USA001808

PATIENT
  Sex: Female

DRUGS (3)
  1. GLIMEPIRIDE. [Concomitant]
     Active Substance: GLIMEPIRIDE
  2. SITAGLIPTIN PHOSPHATE [Suspect]
     Active Substance: SITAGLIPTIN PHOSPHATE
     Indication: BLOOD GLUCOSE INCREASED
     Dosage: 100 MG ONCE A DAY
     Route: 048
     Dates: start: 2009, end: 2017
  3. METFORMIN [Concomitant]
     Active Substance: METFORMIN HYDROCHLORIDE

REACTIONS (2)
  - Glycosylated haemoglobin increased [Not Recovered/Not Resolved]
  - Blood glucose increased [Not Recovered/Not Resolved]

NARRATIVE: CASE EVENT DATE: 2014
